FAERS Safety Report 10176435 (Version 1)
Quarter: 2014Q2

REPORT INFORMATION
  Report Type: Spontaneous
  Country: US (occurrence: US)
  Receive Date: 20140516
  Receipt Date: 20140516
  Transmission Date: 20141212
  Serious: Yes (Other)
  Sender: FDA-Public Use
  Company Number: US-PFIZER INC-2014131355

PATIENT
  Age: 59 Year
  Sex: Female
  Weight: 84.8 kg

DRUGS (3)
  1. XALKORI [Suspect]
     Indication: NON-SMALL CELL LUNG CANCER
     Dosage: 200 MG, DAILY
     Route: 048
     Dates: start: 20111111, end: 201112
  2. DILANTIN [Concomitant]
     Indication: EPILEPSY
     Dosage: UNK
  3. HYDROCODONE [Concomitant]
     Dosage: 7.5/750 EVERY 6 H AS NEEDED

REACTIONS (2)
  - Gastrooesophageal reflux disease [Unknown]
  - Barrett^s oesophagus [Unknown]
